FAERS Safety Report 9414488 (Version 2)
Quarter: 2014Q1

REPORT INFORMATION
  Report Type: Spontaneous
  Country: JP (occurrence: JP)
  Receive Date: 20130723
  Receipt Date: 20140311
  Transmission Date: 20141002
  Serious: Yes (Hospitalization)
  Sender: FDA-Public Use
  Company Number: JP-VIIV HEALTHCARE LIMITED-B0909324A

PATIENT
  Age: 30 Year
  Sex: Male

DRUGS (18)
  1. EPZICOM [Suspect]
     Indication: HIV INFECTION
     Route: 048
     Dates: start: 20111117
  2. VALIXA [Suspect]
     Indication: CYTOMEGALOVIRUS INFECTION
     Dosage: 900MG TWICE PER DAY
     Route: 048
     Dates: start: 20111206, end: 20111223
  3. VALIXA [Suspect]
     Indication: CYTOMEGALOVIRUS INFECTION
     Dosage: 450MG TWICE PER DAY
     Route: 048
     Dates: start: 20111224, end: 20120126
  4. VALIXA [Suspect]
     Indication: CYTOMEGALOVIRUS INFECTION
     Dosage: 450MG TWICE PER DAY
     Route: 048
     Dates: start: 20120216, end: 20120507
  5. VALIXA [Suspect]
     Indication: CYTOMEGALOVIRUS INFECTION
     Dosage: 450MG TWICE PER DAY
     Route: 048
     Dates: start: 20120529, end: 20130304
  6. TRUVADA [Suspect]
     Indication: HIV INFECTION
     Route: 048
     Dates: start: 20111111, end: 20111116
  7. BAKTAR [Suspect]
     Indication: PNEUMOCYSTIS JIROVECII INFECTION
     Dosage: 3IUAX THREE TIMES PER DAY
     Route: 048
     Dates: start: 20111006, end: 20111027
  8. BAKTAR [Suspect]
     Indication: PNEUMOCYSTIS JIROVECII INFECTION
     Dosage: 1IUAX PER DAY
     Route: 048
     Dates: start: 20111028, end: 20111116
  9. NORVIR [Concomitant]
     Indication: HIV INFECTION
     Route: 048
     Dates: start: 20111111, end: 20120129
  10. PREZISTA NAIVE [Concomitant]
     Indication: HIV INFECTION
     Dosage: 400MG TWICE PER DAY
     Route: 048
     Dates: start: 20111111, end: 20120129
  11. ISENTRESS [Concomitant]
     Indication: HIV INFECTION
     Route: 048
     Dates: start: 20120130
  12. ZITHROMAC [Concomitant]
     Indication: PROPHYLAXIS
     Route: 065
     Dates: start: 20111026, end: 20121203
  13. SAMTIREL [Concomitant]
     Indication: ANTIFUNGAL PROPHYLAXIS
     Dosage: 1500MG PER DAY
     Route: 048
     Dates: start: 20120618
  14. PENTAMIDINE ISETIONATE [Concomitant]
     Indication: ANTIFUNGAL PROPHYLAXIS
     Dosage: 200MG PER DAY
     Dates: start: 20111117, end: 20111121
  15. ATOVAQUONE [Concomitant]
     Indication: ANTIFUNGAL PROPHYLAXIS
     Dosage: 750MG TWICE PER DAY
     Route: 048
     Dates: start: 20111122, end: 20120617
  16. DOXIL [Concomitant]
     Indication: KAPOSI^S SARCOMA
     Dosage: 30MG PER DAY
     Route: 042
     Dates: start: 20120131, end: 20120131
  17. DOXIL [Concomitant]
     Indication: KAPOSI^S SARCOMA
     Dosage: 30MG PER DAY
     Route: 042
     Dates: start: 20120221, end: 20120221
  18. GRAN [Concomitant]
     Indication: WHITE BLOOD CELL COUNT DECREASED
     Dates: start: 20120319, end: 20120514

REACTIONS (4)
  - Renal impairment [Recovered/Resolved]
  - Cytomegalovirus chorioretinitis [Recovering/Resolving]
  - White blood cell count decreased [Recovered/Resolved]
  - Hyperamylasaemia [Not Recovered/Not Resolved]
